FAERS Safety Report 9117127 (Version 1)
Quarter: 2013Q1

REPORT INFORMATION
  Report Type: Spontaneous
  Country: IT (occurrence: IT)
  Receive Date: 20130225
  Receipt Date: 20130225
  Transmission Date: 20140127
  Serious: Yes (Other)
  Sender: FDA-Public Use
  Company Number: IT-JNJFOC-20130206628

PATIENT
  Sex: 0

DRUGS (3)
  1. DOXORUBICIN [Suspect]
     Indication: METASTASES TO PERITONEUM
     Route: 042
  2. CISPLATIN [Suspect]
     Indication: METASTASES TO PERITONEUM
     Route: 065
  3. MITOMYCIN-C [Suspect]
     Indication: METASTASES TO PERITONEUM
     Route: 065

REACTIONS (2)
  - Toxicity to various agents [Unknown]
  - Adverse event [Unknown]
